FAERS Safety Report 5933306-5 (Version None)
Quarter: 2008Q4

REPORT INFORMATION
  Report Type: 
  Country: None (occurrence: None)
  Receive Date: 20081028
  Receipt Date: 20081016
  Transmission Date: 20090506
  Serious: Yes (Death)
  Sender: FDA-Public Use
  Company Number: DE-PFIZER INC-2008087972

PATIENT

DRUGS (2)
  1. VFEND [Suspect]
     Indication: BRONCHOPULMONARY ASPERGILLOSIS
     Dosage: DAILY DOSE:200MG
     Route: 048
     Dates: end: 20080801
  2. CHEMOTHERAPY NOS [Concomitant]

REACTIONS (1)
  - SEPTIC SHOCK [None]
